FAERS Safety Report 5758478-7 (Version None)
Quarter: 2008Q2

REPORT INFORMATION
  Report Type: 
  Country: None (occurrence: None)
  Receive Date: 20080604
  Receipt Date: 20080521
  Transmission Date: 20081010
  Serious: Yes (Congenital Anomaly)
  Sender: FDA-Public Use
  Company Number: A0680417A

PATIENT
  Sex: Male

DRUGS (2)
  1. PAXIL [Suspect]
     Indication: DEPRESSION
     Dosage: 60MG PER DAY
  2. PAXIL [Suspect]

REACTIONS (7)
  - DRUG EXPOSURE DURING PREGNANCY [None]
  - INGUINAL HERNIA [None]
  - LARYNGEAL OEDEMA [None]
  - LARYNGOMALACIA [None]
  - MULTIPLE CONGENITAL ABNORMALITIES [None]
  - REFLUX LARYNGITIS [None]
  - WITHDRAWAL SYNDROME [None]
